FAERS Safety Report 25846725 (Version 1)
Quarter: 2025Q3

REPORT INFORMATION
  Report Type: Spontaneous
  Country: EU (occurrence: EU)
  Receive Date: 20250925
  Receipt Date: 20250925
  Transmission Date: 20251021
  Serious: Yes (Hospitalization, Other)
  Sender: AUROBINDO
  Company Number: EU-AFSSAPS-GR2025001385

PATIENT
  Age: 38 Year
  Sex: Female
  Weight: 97.6 kg

DRUGS (1)
  1. ARIPIPRAZOLE [Suspect]
     Active Substance: ARIPIPRAZOLE
     Indication: Schizophrenia
     Dosage: 10 MILLIGRAM, ONCE A DAY (0-0-1)
     Route: 048
     Dates: start: 20240401

REACTIONS (4)
  - Pulmonary embolism [Recovered/Resolved]
  - Aortic thrombosis [Recovered/Resolved]
  - Renal vein thrombosis [Recovered/Resolved]
  - Deep vein thrombosis [Recovered/Resolved]

NARRATIVE: CASE EVENT DATE: 20250729
